FAERS Safety Report 6120359-7 (Version None)
Quarter: 2009Q1

REPORT INFORMATION
  Report Type: 
  Country: None (occurrence: None)
  Receive Date: 20090317
  Receipt Date: 20090310
  Transmission Date: 20090719
  Serious: Yes (Other)
  Sender: FDA-Public Use
  Company Number: US-RANBAXY-2009US-22450

PATIENT

DRUGS (12)
  1. VERAPAMIL [Suspect]
     Indication: ATRIAL FIBRILLATION
     Dosage: 120 MG, 1 IN 1 D
     Dates: start: 19900301
  2. VERAPAMIL [Suspect]
     Indication: CARDIAC FAILURE
  3. DIGOXIN [Concomitant]
     Indication: ATRIAL FIBRILLATION
     Dosage: 0.25 MG, QD
     Dates: start: 19900301
  4. DIGOXIN [Concomitant]
     Indication: CARDIAC FAILURE
  5. FUROSEMIDE [Concomitant]
     Indication: ATRIAL FIBRILLATION
     Dosage: 80 MG, QD
     Dates: start: 19900301
  6. FUROSEMIDE [Concomitant]
     Indication: CARDIAC FAILURE
  7. SPIRONOLACTONE [Suspect]
     Indication: ATRIAL FIBRILLATION
     Dosage: 25 MG, QD
     Dates: start: 19900301
  8. SPIRONOLACTONE [Suspect]
     Indication: CARDIAC FAILURE
  9. CAPTOPRIL [Suspect]
     Indication: ATRIAL FIBRILLATION
     Dosage: 25 MG, QD
     Dates: start: 19900301
  10. CAPTOPRIL [Suspect]
     Indication: CARDIAC FAILURE
  11. COUMARIN DERIVATIVE [Suspect]
     Indication: ATRIAL FIBRILLATION
     Dosage: UNK
     Dates: start: 19900301
  12. COUMARIN DERIVATIVE [Suspect]
     Indication: CARDIAC FAILURE

REACTIONS (2)
  - ADVERSE DRUG REACTION [None]
  - ERYTHROMELALGIA [None]
